FAERS Safety Report 12479670 (Version 1)
Quarter: 2016Q2

REPORT INFORMATION
  Report Type: Spontaneous
  Country: US (occurrence: US)
  Receive Date: 20160620
  Receipt Date: 20160620
  Transmission Date: 20160815
  Serious: No
  Sender: FDA-Public Use
  Company Number: US-BAYER-2016-120148

PATIENT
  Age: 92 Year
  Sex: Male
  Weight: 82 kg

DRUGS (1)
  1. CLARITIN [Suspect]
     Active Substance: LORATADINE
     Indication: SNEEZING
     Dosage: 1 DF, QD
     Route: 048
     Dates: start: 201606

REACTIONS (1)
  - Frequent bowel movements [None]

NARRATIVE: CASE EVENT DATE: 201606
